FAERS Safety Report 9402754 (Version 2)
Quarter: 2013Q3

REPORT INFORMATION
  Report Type: Spontaneous
  Country: US (occurrence: US)
  Receive Date: 20130716
  Receipt Date: 20130806
  Transmission Date: 20140515
  Serious: Yes (Other)
  Sender: FDA-Public Use
  Company Number: US-PFIZER INC-2013206497

PATIENT
  Age: 81 Year
  Sex: Male
  Weight: 72.56 kg

DRUGS (3)
  1. LYRICA [Suspect]
     Indication: FACIAL NEURALGIA
     Dosage: 75 MG, 2X/DAY
     Dates: start: 2013
  2. CRESTOR [Suspect]
     Indication: HYPERTENSION
     Dosage: UNK
  3. CARBAMAZEPINE [Concomitant]
     Indication: FACIAL NEURALGIA
     Dosage: 300 MG, 2X/DAY

REACTIONS (6)
  - Off label use [Unknown]
  - Coronary artery disease [Unknown]
  - Fatigue [Unknown]
  - Asthenia [Unknown]
  - Anaemia [Unknown]
  - Pain [Unknown]
